FAERS Safety Report 17345605 (Version 2)
Quarter: 2020Q1

REPORT INFORMATION
  Report Type: Spontaneous
  Country: US (occurrence: US)
  Receive Date: 20200129
  Receipt Date: 20200208
  Transmission Date: 20200409
  Serious: Yes (Other)
  Sender: FDA-Public Use
  Company Number: US-TEVA-2020-US-1175599

PATIENT
  Age: 52 Year
  Sex: Male

DRUGS (1)
  1. CIPROFLOXACIN. [Suspect]
     Active Substance: CIPROFLOXACIN
     Indication: TOOTH INFECTION
     Route: 048

REACTIONS (5)
  - Rash [Recovered/Resolved]
  - Fixed eruption [Recovered/Resolved]
  - Eczema [Unknown]
  - Intentional product misuse [Unknown]
  - Blister [Recovered/Resolved]
